FAERS Safety Report 9913412 (Version 1)
Quarter: 2014Q1

REPORT INFORMATION
  Report Type: Spontaneous
  Country: IE (occurrence: IE)
  Receive Date: 20140220
  Receipt Date: 20140220
  Transmission Date: 20141002
  Serious: Yes (Life-Threatening, Hospitalization, Other)
  Sender: FDA-Public Use
  Company Number: IE-ASTELLAS-2014EU001222

PATIENT
  Age: 42 Year
  Sex: Male

DRUGS (6)
  1. TACROLIMUS SYSTEMIC [Suspect]
     Indication: RENAL TRANSPLANT
     Dosage: UNK
     Route: 065
  2. PREDNISOLONE [Suspect]
     Indication: RENAL TRANSPLANT
     Dosage: UNK
     Route: 065
  3. MYCOPHENOLATE [Suspect]
     Indication: RENAL TRANSPLANT
     Dosage: UNK
     Route: 065
  4. AZATHIOPRINE [Suspect]
     Indication: RENAL TRANSPLANT
     Dosage: UNK
     Route: 065
  5. ETOPOSIDE [Suspect]
     Indication: TESTICULAR GERM CELL CANCER METASTATIC
     Dosage: 80 MG/M2, OTHER
     Route: 065
  6. CISPLATIN [Suspect]
     Indication: TESTICULAR GERM CELL CANCER METASTATIC
     Dosage: 20 MG/M2, OTHER
     Route: 065

REACTIONS (10)
  - Pancytopenia [Unknown]
  - Neutropenic sepsis [Unknown]
  - Cytomegalovirus infection [Unknown]
  - Leukopenia [Unknown]
  - Gastrointestinal disorder [Unknown]
  - Testicular germ cell cancer metastatic [Recovering/Resolving]
  - Bone marrow failure [Unknown]
  - Enterococcal infection [Unknown]
  - Decubitus ulcer [Unknown]
  - Renal failure acute [Unknown]
